FAERS Safety Report 19370818 (Version 1)
Quarter: 2021Q2

REPORT INFORMATION
  Report Type: Spontaneous
  Country: PK (occurrence: PK)
  Receive Date: 20210603
  Receipt Date: 20210603
  Transmission Date: 20210717
  Serious: Yes (Death)
  Sender: FDA-Public Use
  Company Number: PK-PFIZER INC-2021433899

PATIENT
  Age: 60 Year
  Sex: Male

DRUGS (1)
  1. SUTENT [Suspect]
     Active Substance: SUNITINIB MALATE
     Indication: PAPILLARY RENAL CELL CARCINOMA
     Dosage: 50 MG, TAKE 1 DAILY, CONTINUE
     Route: 048

REACTIONS (2)
  - Off label use [Unknown]
  - Death [Fatal]
